FAERS Safety Report 23321140 (Version 1)
Quarter: 2023Q4

REPORT INFORMATION
  Report Type: Spontaneous
  Country: US (occurrence: US)
  Receive Date: 20231220
  Receipt Date: 20231220
  Transmission Date: 20240110
  Serious: No
  Sender: FDA-Public Use
  Company Number: US-BEH-2023166502

PATIENT
  Sex: Male
  Weight: 78 kg

DRUGS (4)
  1. HEMGENIX [Suspect]
     Active Substance: ETRANACOGENE DEZAPARVOVEC
     Indication: Factor IX deficiency
     Dosage: 16 DOSAGE FORM
     Route: 065
     Dates: start: 20231208, end: 20231208
  2. SODIUM CHLORIDE [Concomitant]
     Active Substance: SODIUM CHLORIDE
     Dosage: UNK
     Dates: start: 20231208, end: 20231208
  3. TYLENOL [Concomitant]
     Active Substance: ACETAMINOPHEN
     Indication: Premedication
  4. TYLENOL [Concomitant]
     Active Substance: ACETAMINOPHEN
     Indication: Premedication

REACTIONS (2)
  - Headache [Unknown]
  - Feeling cold [Unknown]

NARRATIVE: CASE EVENT DATE: 20231208
